FAERS Safety Report 5016321-8 (Version None)
Quarter: 2006Q2

REPORT INFORMATION
  Report Type: 
  Country: None (occurrence: None)
  Receive Date: 20060425
  Receipt Date: 20041222
  Transmission Date: 20061013
  Serious: Yes (Disabling)
  Sender: FDA-Public Use
  Company Number: MED-04032

PATIENT
  Age: 41 Year
  Sex: Female

DRUGS (2)
  1. METRONIDAZOLE [Suspect]
     Indication: CLOSTRIDIAL INFECTION
     Dosage: 1 TABLETS 3 TIMES DAILY
     Dates: start: 20041125, end: 20041201
  2. XANAX AND OVER THE COUNTER VITAMINS [Concomitant]

REACTIONS (3)
  - FATIGUE [None]
  - HYPOAESTHESIA [None]
  - RESTLESSNESS [None]
